FAERS Safety Report 13204935 (Version 1)
Quarter: 2017Q1

REPORT INFORMATION
  Report Type: Spontaneous
  Country: US (occurrence: US)
  Receive Date: 20170209
  Receipt Date: 20170209
  Transmission Date: 20170428
  Serious: Yes (Other)
  Sender: FDA-Public Use
  Company Number: US-AMGEN-USASP2017010183

PATIENT
  Age: 64 Year
  Sex: Male
  Weight: 117.1 kg

DRUGS (7)
  1. COUMADIN [Suspect]
     Active Substance: WARFARIN SODIUM
     Indication: PRODUCT USED FOR UNKNOWN INDICATION
     Dosage: 7.5 MG, QD
     Route: 048
     Dates: start: 20170116
  2. THERAGRAN [Concomitant]
     Active Substance: VITAMINS
     Dosage: UNK
     Route: 048
  3. VITAMIN D3 [Concomitant]
     Active Substance: CHOLECALCIFEROL
     Dosage: 5000 UNIT, UNK
     Route: 048
  4. REPATHA [Suspect]
     Active Substance: EVOLOCUMAB
     Indication: TYPE V HYPERLIPIDAEMIA
     Dosage: 140 MG, Q2WK
     Route: 058
     Dates: start: 20161116, end: 20170111
  5. NITROSTAT [Concomitant]
     Active Substance: NITROGLYCERIN
     Indication: CHEST PAIN
     Dosage: 0.4 MG, UNK
     Route: 060
     Dates: start: 20160401
  6. LOPRESSOR [Concomitant]
     Active Substance: METOPROLOL TARTRATE
     Dosage: 25 MG, BID
     Route: 048
     Dates: start: 20160712
  7. ASPIRIN. [Concomitant]
     Active Substance: ASPIRIN
     Dosage: UNK
     Route: 048
     Dates: start: 20160326

REACTIONS (6)
  - Back pain [Recovered/Resolved]
  - Cardiac arrest [Unknown]
  - Muscle spasms [Recovered/Resolved]
  - Myalgia [Unknown]
  - Blood bilirubin increased [Unknown]
  - Brain injury [Recovering/Resolving]

NARRATIVE: CASE EVENT DATE: 20161221
